FAERS Safety Report 22132055 (Version 1)
Quarter: 2023Q1

REPORT INFORMATION
  Report Type: Spontaneous
  Country: CN (occurrence: CN)
  Receive Date: 20230323
  Receipt Date: 20230323
  Transmission Date: 20230418
  Serious: Yes (Other)
  Sender: FDA-Public Use
  Company Number: CN-PFIZER INC-PV202300053909

PATIENT
  Age: 94 Year
  Sex: Male
  Weight: 60 kg

DRUGS (3)
  1. ZITHROMAX [Suspect]
     Active Substance: AZITHROMYCIN DIHYDRATE
     Indication: Pneumonia
     Dosage: 0.5 G, 1X/DAY
     Route: 048
     Dates: start: 20230119, end: 20230120
  2. FLUIMUCIL [Suspect]
     Active Substance: ACETYLCYSTEINE
     Indication: Interstitial lung disease
     Dosage: 0.6 G, 2X/DAY
     Route: 048
     Dates: start: 20230119, end: 20230120
  3. MEROPENEM [Concomitant]
     Active Substance: MEROPENEM
     Indication: Pneumonia
     Dosage: 1 G, 3X/DAY (Q8H)
     Route: 041
     Dates: start: 20230107, end: 20230118

REACTIONS (1)
  - Drug eruption [Recovering/Resolving]

NARRATIVE: CASE EVENT DATE: 20230119
